FAERS Safety Report 9490173 (Version 2)
Quarter: 2013Q3

REPORT INFORMATION
  Report Type: Report from Study
  Country: CA (occurrence: CA)
  Receive Date: 20130830
  Receipt Date: 20130830
  Transmission Date: 20140515
  Serious: Yes (Hospitalization)
  Sender: FDA-Public Use
  Company Number: CA-ROCHE-1251187

PATIENT
  Age: 75 Year
  Sex: Female

DRUGS (10)
  1. ACTEMRA [Suspect]
     Indication: RHEUMATOID ARTHRITIS
     Route: 042
     Dates: start: 20120509
  2. RITUXAN [Suspect]
     Indication: RHEUMATOID ARTHRITIS
     Route: 042
     Dates: start: 20110728, end: 20110811
  3. ACETAMINOPHEN [Concomitant]
     Route: 048
     Dates: start: 20110728, end: 20110811
  4. DIPHENHYDRAMINE HCL [Concomitant]
     Route: 048
     Dates: start: 20110728, end: 20110811
  5. METHYLPREDNISOLONE [Concomitant]
     Route: 042
     Dates: start: 20110728, end: 20110811
  6. LEUCOVORIN [Concomitant]
  7. RABEPRAZOLE [Concomitant]
  8. CALTRATE [Concomitant]
  9. VITAMIN B12 [Concomitant]
  10. METHOTREXATE [Concomitant]

REACTIONS (2)
  - Blood sodium decreased [Unknown]
  - Infusion related reaction [Recovered/Resolved]
